FAERS Safety Report 12496582 (Version 3)
Quarter: 2016Q3

REPORT INFORMATION
  Report Type: Spontaneous
  Country: US (occurrence: US)
  Receive Date: 20160624
  Receipt Date: 20160825
  Transmission Date: 20161109
  Serious: No
  Sender: FDA-Public Use
  Company Number: PHEH2016US015733

PATIENT
  Age: 82 Year
  Sex: Male
  Weight: 143 kg

DRUGS (2)
  1. EXELON PATCH [Suspect]
     Active Substance: RIVASTIGMINE
     Indication: DEMENTIA ALZHEIMER^S TYPE
     Dosage: 13.3 MG, UNK
     Route: 062
  2. EXELON PATCH [Suspect]
     Active Substance: RIVASTIGMINE
     Dosage: 13.3 OT, PER DAY
     Route: 062
     Dates: start: 20150506

REACTIONS (2)
  - Drug ineffective [Recovering/Resolving]
  - Product adhesion issue [Recovering/Resolving]

NARRATIVE: CASE EVENT DATE: 20160505
